FAERS Safety Report 15136530 (Version 1)
Quarter: 2018Q3

REPORT INFORMATION
  Report Type: Spontaneous
  Country: US (occurrence: US)
  Receive Date: 20180618
  Receipt Date: 20180618
  Transmission Date: 20181010
  Serious: Yes (Disabling)
  Sender: FDA-Public Use
  Company Number: None

PATIENT
  Age: 74 Year
  Sex: Female
  Weight: 50.85 kg

DRUGS (7)
  1. COQ10 [Concomitant]
     Active Substance: UBIDECARENONE
  2. PRAVASTATIN. [Concomitant]
     Active Substance: PRAVASTATIN
  3. PRAVASTATIN 10MG TABLETS [Suspect]
     Active Substance: PRAVASTATIN SODIUM
     Indication: BLOOD CHOLESTEROL INCREASED
     Route: 048
     Dates: start: 20110101
  4. LASARTAN [Concomitant]
  5. MULTI [Concomitant]
  6. ASPIRIN LOW DOSE [Concomitant]
     Active Substance: ASPIRIN
  7. FISH OIL [Concomitant]
     Active Substance: FISH OIL

REACTIONS (2)
  - Cardiac flutter [None]
  - Heart rate increased [None]

NARRATIVE: CASE EVENT DATE: 20170701
